FAERS Safety Report 15653878 (Version 1)
Quarter: 2018Q4

REPORT INFORMATION
  Report Type: Spontaneous
  Country: US (occurrence: US)
  Receive Date: 20181124
  Receipt Date: 20181124
  Transmission Date: 20190205
  Serious: No
  Sender: FDA-Public Use
  Company Number: None

PATIENT
  Age: 41 Year
  Sex: Male
  Weight: 78.75 kg

DRUGS (1)
  1. FINASTERIDE. [Suspect]
     Active Substance: FINASTERIDE
     Indication: ALOPECIA
     Dosage: ?          QUANTITY:0.25 TABLET(S);?
     Route: 048
     Dates: start: 20180401, end: 20181021

REACTIONS (5)
  - Depressed mood [None]
  - Fatigue [None]
  - Libido decreased [None]
  - Listless [None]
  - Weight loss poor [None]
